FAERS Safety Report 22517027 (Version 1)
Quarter: 2023Q2

REPORT INFORMATION
  Report Type: Spontaneous
  Country: US (occurrence: US)
  Receive Date: 20230603
  Receipt Date: 20230603
  Transmission Date: 20230722
  Serious: Yes (Other)
  Sender: FDA-Public Use
  Company Number: US-SUN PHARMACEUTICAL INDUSTRIES LTD-2023R1-391715

PATIENT
  Sex: Male

DRUGS (1)
  1. RANITIDINE [Suspect]
     Active Substance: RANITIDINE
     Indication: Product used for unknown indication
     Dosage: UNK
     Route: 065
     Dates: start: 201306, end: 201511

REACTIONS (11)
  - Hepatic cancer [Unknown]
  - Bladder cancer [Unknown]
  - Breast cancer [Unknown]
  - Colorectal cancer [Unknown]
  - Oesophageal carcinoma [Unknown]
  - Gastric cancer [Unknown]
  - Renal cancer [Unknown]
  - Lung neoplasm malignant [Unknown]
  - Pancreatic carcinoma [Unknown]
  - Prostate cancer [Unknown]
  - Skin cancer [Unknown]

NARRATIVE: CASE EVENT DATE: 20151115
